FAERS Safety Report 5444975-0 (Version None)
Quarter: 2007Q3

REPORT INFORMATION
  Report Type: 
  Country: None (occurrence: None)
  Receive Date: 20070904
  Receipt Date: 20070904
  Transmission Date: 20080115
  Serious: Yes (Hospitalization)
  Sender: FDA-Public Use
  Company Number: None

PATIENT
  Age: 28 Year
  Sex: Female

DRUGS (2)
  1. NAPROXEN [Suspect]
     Indication: BACK PAIN
  2. MOTRIN [Suspect]

REACTIONS (3)
  - OVERDOSE [None]
  - RESPIRATORY DISORDER [None]
  - SWOLLEN TONGUE [None]
